FAERS Safety Report 26212415 (Version 2)
Quarter: 2025Q4

REPORT INFORMATION
  Report Type: Spontaneous
  Country: US (occurrence: US)
  Receive Date: 20251230
  Receipt Date: 20251230
  Transmission Date: 20260117
  Serious: Yes (Other)
  Sender: ROCHE
  Company Number: US-ROCHE-10000464909

PATIENT

DRUGS (10)
  1. CELLCEPT [Suspect]
     Active Substance: MYCOPHENOLATE MOFETIL
     Indication: Mixed connective tissue disease
  2. CELLCEPT [Suspect]
     Active Substance: MYCOPHENOLATE MOFETIL
     Indication: Proteinuria
  3. METHOTREXATE [Concomitant]
     Active Substance: METHOTREXATE
     Indication: Proteinuria
  4. TACROLIMUS [Concomitant]
     Active Substance: TACROLIMUS
     Indication: Proteinuria
  5. PREDNISONE [Concomitant]
     Active Substance: PREDNISONE
     Indication: Proteinuria
  6. Benlystaysta [Concomitant]
     Indication: Proteinuria
  7. PLAQUENIL [Concomitant]
     Active Substance: HYDROXYCHLOROQUINE SULFATE
  8. LIPITOR [Concomitant]
     Active Substance: ATORVASTATIN CALCIUM
  9. ATORVASTATIN [Concomitant]
     Active Substance: ATORVASTATIN
  10. Saphenelo [Concomitant]

REACTIONS (2)
  - Mixed connective tissue disease [Unknown]
  - Off label use [Unknown]
